FAERS Safety Report 13074744 (Version 3)
Quarter: 2017Q1

REPORT INFORMATION
  Report Type: Spontaneous
  Country: US (occurrence: US)
  Receive Date: 20161230
  Receipt Date: 20170118
  Transmission Date: 20170428
  Serious: No
  Sender: FDA-Public Use
  Company Number: US-LEO PHARMA-245312

PATIENT
  Age: 56 Year
  Sex: Female

DRUGS (1)
  1. PICATO [Suspect]
     Active Substance: INGENOL MEBUTATE
     Indication: PRECANCEROUS SKIN LESION
     Dosage: DAILY BUT SKIPPED ONE DAY
     Route: 061
     Dates: start: 20161227, end: 20161230

REACTIONS (9)
  - Application site erosion [Recovered/Resolved]
  - Insomnia [Recovered/Resolved]
  - Drug administered at inappropriate site [Unknown]
  - Incorrect product storage [Recovered/Resolved]
  - Inappropriate schedule of drug administration [Recovered/Resolved]
  - Application site exfoliation [Recovered/Resolved]
  - Inappropriate schedule of drug administration [Unknown]
  - Application site vesicles [Recovered/Resolved]
  - Application site pain [Recovered/Resolved]

NARRATIVE: CASE EVENT DATE: 20161227
